FAERS Safety Report 19661066 (Version 2)
Quarter: 2021Q3

REPORT INFORMATION
  Report Type: Spontaneous
  Country: FR (occurrence: FR)
  Receive Date: 20210805
  Receipt Date: 20210818
  Transmission Date: 20211014
  Serious: Yes (Life-Threatening, Hospitalization, Other)
  Sender: FDA-Public Use
  Company Number: FR-MYLANLABS-2021M1047406

PATIENT
  Age: 67 Year
  Sex: Female
  Weight: 108 kg

DRUGS (10)
  1. MERONEM [Suspect]
     Active Substance: MEROPENEM
     Indication: OSTEITIS
     Dosage: 2 GRAM, Q8H
     Route: 042
     Dates: start: 20201202, end: 20210108
  2. DEPAKOTE [Concomitant]
     Active Substance: DIVALPROEX SODIUM
     Dosage: UNK
     Route: 048
  3. AMLOR [Concomitant]
     Active Substance: AMLODIPINE BESYLATE
     Dosage: UNK
     Route: 048
  4. LEVOTHYROX [Concomitant]
     Active Substance: LEVOTHYROXINE
     Dosage: UNK
     Route: 048
  5. LEVOFLOXACIN. [Suspect]
     Active Substance: LEVOFLOXACIN
     Indication: OSTEITIS
     Dosage: 750 MILLIGRAM, QD
     Route: 048
     Dates: start: 20210105, end: 20210108
  6. DAPTOMYCINE [Concomitant]
     Active Substance: DAPTOMYCIN
     Indication: OSTEITIS
     Dosage: 850 MILLIGRAM, QD
     Route: 042
     Dates: start: 20201202, end: 20210105
  7. LOVENOX [Concomitant]
     Active Substance: ENOXAPARIN SODIUM
     Dosage: UNK
     Route: 058
  8. RIFAMPICINE [Suspect]
     Active Substance: RIFAMPIN
     Indication: OSTEITIS
     Dosage: 900 MILLIGRAM, QD
     Route: 048
     Dates: start: 20210105, end: 20210108
  9. ACTISKENAN [Concomitant]
     Active Substance: MORPHINE SULFATE
     Dosage: UNK
     Route: 048
  10. VENLAFAXINE [Concomitant]
     Active Substance: VENLAFAXINE HYDROCHLORIDE
     Dosage: UNK
     Route: 048

REACTIONS (1)
  - Agranulocytosis [Recovered/Resolved]

NARRATIVE: CASE EVENT DATE: 20210108
